FAERS Safety Report 5681020-6 (Version None)
Quarter: 2008Q1

REPORT INFORMATION
  Report Type: 
  Country: None (occurrence: None)
  Receive Date: 20080325
  Receipt Date: 20080306
  Transmission Date: 20080703
  Serious: Yes (Death)
  Sender: FDA-Public Use
  Company Number: UKO08000318

PATIENT
  Age: 31 Year
  Sex: Female
  Weight: 73.8 kg

DRUGS (3)
  1. NYQUIL, FORM/ VERSION/ FLAVOR UNKNOWN(ETHANOL UNKNOWN UNK, CHLORPHENAM [Suspect]
     Indication: UPPER RESPIRATORY TRACT INFECTION
     Dosage: DF, ORAL
     Route: 048
  2. SUDAFED /00076302/(PSEUDOEPHEDRINE HYDROCHLORIDE) [Suspect]
     Indication: UPPER RESPIRATORY TRACT INFECTION
     Dosage: TABLET, ORAL
     Route: 048
  3. LOESTRIN 1.5/30 (ETHINYLESTRADIOL, NORETHISTERONE ACETATE) [Concomitant]

REACTIONS (28)
  - ARRHYTHMIA [None]
  - BLOOD BICARBONATE DECREASED [None]
  - BLOOD GASES ABNORMAL [None]
  - BLOOD GLUCOSE INCREASED [None]
  - BLOOD PH DECREASED [None]
  - CARDIAC FAILURE CONGESTIVE [None]
  - CARDIOMYOPATHY [None]
  - COLD SWEAT [None]
  - DYSPNOEA [None]
  - FATIGUE [None]
  - FEELING ABNORMAL [None]
  - HEART RATE INCREASED [None]
  - HYPERTENSION [None]
  - HYPERTENSIVE CRISIS [None]
  - LUNG INFILTRATION [None]
  - PALLOR [None]
  - PALPITATIONS [None]
  - PCO2 INCREASED [None]
  - PHAEOCHROMOCYTOMA [None]
  - PO2 DECREASED [None]
  - PO2 INCREASED [None]
  - RALES [None]
  - RESPIRATORY RATE INCREASED [None]
  - RHYTHM IDIOVENTRICULAR [None]
  - SHOCK [None]
  - SOMNOLENCE [None]
  - VENTRICULAR TACHYCARDIA [None]
  - VOMITING [None]
